FAERS Safety Report 7476942-X (Version None)
Quarter: 2011Q2

REPORT INFORMATION
  Report Type: 
  Country: None (occurrence: None)
  Receive Date: 20110512
  Receipt Date: 20110425
  Transmission Date: 20111010
  Serious: No
  Sender: FDA-Public Use
  Company Number: US-ASTRAZENECA-2011SE23618

PATIENT

DRUGS (3)
  1. TEGRETOL [Suspect]
     Route: 065
  2. SEROQUEL XR [Suspect]
     Route: 048
  3. ZYPREXA [Suspect]
     Route: 065

REACTIONS (1)
  - NEUTROPENIA [None]
